FAERS Safety Report 4584588-6 (Version None)
Quarter: 2005Q1

REPORT INFORMATION
  Report Type: 
  Country: None (occurrence: None)
  Receive Date: 20050125
  Receipt Date: 20041026
  Transmission Date: 20050727
  Serious: No
  Sender: FDA-Public Use
  Company Number: USA040465658

PATIENT
  Age: 57 Year
  Sex: Female
  Weight: 57 kg

DRUGS (2)
  1. FORTEO [Suspect]
     Indication: OSTEOPOROSIS
     Dosage: 20 UG/1 DAY
     Dates: start: 20040420, end: 20040915
  2. CALCIUM GLUCONATE [Concomitant]

REACTIONS (6)
  - ABDOMINAL PAIN UPPER [None]
  - BONE DENSITY DECREASED [None]
  - CONSTIPATION [None]
  - FEELING ABNORMAL [None]
  - INJECTION SITE PAIN [None]
  - URINE CALCIUM INCREASED [None]
